FAERS Safety Report 18649161 (Version 1)
Quarter: 2020Q4

REPORT INFORMATION
  Report Type: Spontaneous
  Country: GB (occurrence: GB)
  Receive Date: 20201222
  Receipt Date: 20201222
  Transmission Date: 20210114
  Serious: Yes (Death, Other)
  Sender: FDA-Public Use
  Company Number: GB-INSMED, INC.-E2B_00000361

PATIENT
  Age: 67 Year
  Sex: Male

DRUGS (7)
  1. COLISTIN [Suspect]
     Active Substance: COLISTIN
     Indication: SEPSIS
     Dosage: 3 MU TDS
  2. FLUCONAZOLE. [Suspect]
     Active Substance: FLUCONAZOLE
     Indication: SEPSIS
     Dosage: UNK
  3. COLISTIN [Suspect]
     Active Substance: COLISTIN
     Indication: ENTEROCOCCAL INFECTION
     Dosage: 2 MU
  4. FLUCONAZOLE. [Suspect]
     Active Substance: FLUCONAZOLE
     Indication: ENTEROCOCCAL INFECTION
     Dosage: UNK
  5. TYGACIL [Suspect]
     Active Substance: TIGECYCLINE
     Indication: ENTEROCOCCAL INFECTION
     Dosage: 100 MG, UNK
  6. TYGACIL [Suspect]
     Active Substance: TIGECYCLINE
     Indication: SEPSIS
  7. AMIKACIN. [Suspect]
     Active Substance: AMIKACIN
     Indication: BILIARY SEPSIS

REACTIONS (4)
  - Gallstone ileus [Fatal]
  - Abdominal adhesions [Fatal]
  - Multiple organ dysfunction syndrome [Fatal]
  - Drug ineffective [Fatal]

NARRATIVE: CASE EVENT DATE: 20180301
